FAERS Safety Report 7898713-2 (Version None)
Quarter: 2011Q4

REPORT INFORMATION
  Report Type: 
  Country: None (occurrence: None)
  Receive Date: 20111107
  Receipt Date: 20101129
  Transmission Date: 20120403
  Serious: No
  Sender: FDA-Public Use
  Company Number: US-ABBOTT-10P-163-0679636-00

PATIENT
  Sex: Male

DRUGS (5)
  1. ENALAPRIL MALEATE [Concomitant]
     Indication: HYPERTENSION
  2. TRICOR [Suspect]
     Indication: PRODUCT USED FOR UNKNOWN INDICATION
     Dates: start: 20090101
  3. GABAPENTIN [Concomitant]
     Indication: PRODUCT USED FOR UNKNOWN INDICATION
  4. ROPINIROLE [Concomitant]
     Indication: PRODUCT USED FOR UNKNOWN INDICATION
  5. ACTOS [Concomitant]
     Indication: PRODUCT USED FOR UNKNOWN INDICATION

REACTIONS (1)
  - MEDICATION RESIDUE [None]
